FAERS Safety Report 5776036-5 (Version None)
Quarter: 2008Q2

REPORT INFORMATION
  Report Type: 
  Country: None (occurrence: None)
  Receive Date: 20080617
  Receipt Date: 20080611
  Transmission Date: 20081010
  Serious: Yes (Hospitalization)
  Sender: FDA-Public Use
  Company Number: AU-MERCK-0806AUS00041

PATIENT
  Age: 21 Year
  Sex: Male

DRUGS (1)
  1. FOSAMAX [Suspect]
     Indication: BONE DENSITY DECREASED
     Route: 065

REACTIONS (2)
  - CONDITION AGGRAVATED [None]
  - KYPHOSIS [None]
